FAERS Safety Report 15794444 (Version 4)
Quarter: 2019Q1

REPORT INFORMATION
  Report Type: Spontaneous
  Country: US (occurrence: US)
  Receive Date: 20190107
  Receipt Date: 20190307
  Transmission Date: 20190417
  Serious: Yes (Other)
  Sender: FDA-Public Use
  Company Number: US-GW PHARMA-201901USGW0006

PATIENT

DRUGS (7)
  1. EPIDIOLEX [Suspect]
     Active Substance: CANNABIDIOL
     Indication: LENNOX-GASTAUT SYNDROME
     Dosage: 140 MILLIGRAM, QD
     Route: 048
     Dates: start: 20181203, end: 20181209
  2. EPIDIOLEX [Suspect]
     Active Substance: CANNABIDIOL
     Dosage: 10 MG/KG, 560 MILLIGRAM, QD
     Route: 048
     Dates: start: 20181210
  3. FYCOMPA [Concomitant]
     Active Substance: PERAMPANEL
     Dosage: HIGHER DOSE THAN 3 MG QD.
     Route: 065
  4. ONFI [Concomitant]
     Active Substance: CLOBAZAM
     Dosage: 20 MILLIGRAM, BID
     Route: 065
  5. LAMOTRIGINE. [Concomitant]
     Active Substance: LAMOTRIGINE
     Indication: PRODUCT USED FOR UNKNOWN INDICATION
     Dosage: 150 MILLIGRAM, BID
     Route: 065
  6. ONFI [Concomitant]
     Active Substance: CLOBAZAM
     Indication: LENNOX-GASTAUT SYNDROME
     Dosage: 30 MILLIGRAM, QD (ONFI 20 MG 1/2 PILL AM AND 1 PILL PM)
     Route: 065
  7. FYCOMPA [Concomitant]
     Active Substance: PERAMPANEL
     Indication: PRODUCT USED FOR UNKNOWN INDICATION
     Dosage: 3 MILLIGRAM, QD
     Route: 065

REACTIONS (2)
  - Seizure [Recovered/Resolved]
  - Thirst [Recovered/Resolved]

NARRATIVE: CASE EVENT DATE: 20181231
